FAERS Safety Report 5350452-8 (Version None)
Quarter: 2007Q2

REPORT INFORMATION
  Report Type: 
  Country: None (occurrence: None)
  Receive Date: 20070608
  Receipt Date: 20070530
  Transmission Date: 20071010
  Serious: Yes (Other)
  Sender: FDA-Public Use
  Company Number: PHFR2007GB01764

PATIENT
  Sex: Male

DRUGS (4)
  1. DICLOFENAC [Suspect]
     Indication: PAIN
     Route: 065
  2. CODIPAR [Suspect]
     Indication: PAIN
     Dosage: 1 TABLET EACH MORNING
     Route: 065
  3. DOSULEPIN [Suspect]
     Indication: DEPRESSION
     Dosage: NOCTE
     Route: 048
     Dates: start: 20070516
  4. TRAMADOL HCL [Suspect]
     Indication: PAIN
     Route: 048

REACTIONS (6)
  - CIRCULATORY COLLAPSE [None]
  - CONVULSION [None]
  - DRUG INEFFECTIVE [None]
  - MALAISE [None]
  - MUSCLE SPASMS [None]
  - WHITE BLOOD CELL COUNT INCREASED [None]
